FAERS Safety Report 11221792 (Version 2)
Quarter: 2015Q3

REPORT INFORMATION
  Report Type: Spontaneous
  Country: BR (occurrence: BR)
  Receive Date: 20150626
  Receipt Date: 20150812
  Transmission Date: 20151125
  Serious: Yes (Other)
  Sender: FDA-Public Use
  Company Number: BR-PFIZER INC-2015211141

PATIENT
  Age: 29 Year
  Sex: Female
  Weight: 74 kg

DRUGS (3)
  1. DOSTINEX [Suspect]
     Active Substance: CABERGOLINE
     Dosage: 1.5 TABLET OF AN UNSPECIFIED DOSE, WEEKLY
     Route: 048
     Dates: start: 2013
  2. DOSTINEX [Suspect]
     Active Substance: CABERGOLINE
     Indication: BLOOD PROLACTIN INCREASED
     Dosage: HALF TABLET (0.25 MG), WEEKLY
     Route: 048
     Dates: start: 2013
  3. DOSTINEX [Suspect]
     Active Substance: CABERGOLINE
     Dosage: 1 TABLET (0.5 MG), WEEKLY
     Route: 048

REACTIONS (2)
  - Pituitary tumour [Not Recovered/Not Resolved]
  - Disease progression [Not Recovered/Not Resolved]

NARRATIVE: CASE EVENT DATE: 201505
